FAERS Safety Report 10203756 (Version 1)
Quarter: 2014Q2

REPORT INFORMATION
  Report Type: Spontaneous
  Country: FR (occurrence: FR)
  Receive Date: 20140529
  Receipt Date: 20140529
  Transmission Date: 20141212
  Serious: Yes (Death)
  Sender: FDA-Public Use
  Company Number: PHHY2014FR063566

PATIENT
  Age: 78 Year
  Sex: Female

DRUGS (3)
  1. AFINITOR [Suspect]
     Indication: RENAL CANCER
     Dosage: 10 MG, QD
     Route: 048
     Dates: start: 20131112, end: 20140206
  2. PREDNISONE [Concomitant]
     Dosage: 60 MG, QD
  3. CORTICOSTEROIDS [Concomitant]
     Indication: DYSPNOEA

REACTIONS (1)
  - Lung disorder [Fatal]
